FAERS Safety Report 4609648-2 (Version None)
Quarter: 2005Q1

REPORT INFORMATION
  Report Type: 
  Country: None (occurrence: None)
  Receive Date: 20050314
  Receipt Date: 20050314
  Transmission Date: 20050727
  Serious: Yes (Life-Threatening, Hospitalization, Other)
  Sender: FDA-Public Use
  Company Number: None

PATIENT
  Age: 36 Year
  Sex: Male
  Weight: 99.7913 kg

DRUGS (2)
  1. ZOLOFT [Suspect]
     Indication: STRESS
     Dosage: 50 MG QD ORAL
     Route: 048
     Dates: start: 20050211, end: 20050301
  2. PAXIL CR [Suspect]
     Indication: STRESS
     Dosage: 25 MG QD ORAL
     Route: 048
     Dates: start: 20050301, end: 20050309

REACTIONS (5)
  - AGGRESSION [None]
  - ANGER [None]
  - HOMICIDAL IDEATION [None]
  - NERVOUSNESS [None]
  - SUICIDAL IDEATION [None]
